FAERS Safety Report 24365670 (Version 1)
Quarter: 2024Q3

REPORT INFORMATION
  Report Type: Spontaneous
  Country: US (occurrence: US)
  Receive Date: 20240926
  Receipt Date: 20240926
  Transmission Date: 20241017
  Serious: Yes (Hospitalization)
  Sender: CIPLA
  Company Number: US-CIPLA LTD.-2024US10472

PATIENT

DRUGS (4)
  1. ALBUTEROL [Suspect]
     Active Substance: ALBUTEROL
     Indication: Product used for unknown indication
     Dosage: UNK (2 PUFFS 3-4 TIMES A DAY.)
     Route: 065
     Dates: start: 2023
  2. ALBUTEROL [Suspect]
     Active Substance: ALBUTEROL
     Dosage: UNK (2 PUFFS 3-4 TIMES A DAY.)
     Route: 065
  3. ALBUTEROL [Suspect]
     Active Substance: ALBUTEROL
     Dosage: UNK (2 PUFFS 3-4 TIMES A DAY.)
     Route: 065
  4. ALBUTEROL [Suspect]
     Active Substance: ALBUTEROL
     Dosage: UNK (2 PUFFS 3-4 TIMES A DAY.)
     Route: 065
     Dates: start: 202408

REACTIONS (3)
  - Adverse event [Unknown]
  - Device delivery system issue [Unknown]
  - Drug dose omission by device [Unknown]
